FAERS Safety Report 16027489 (Version 2)
Quarter: 2019Q1

REPORT INFORMATION
  Report Type: Spontaneous
  Country: HU (occurrence: HU)
  Receive Date: 20190304
  Receipt Date: 20190314
  Transmission Date: 20190418
  Serious: Yes (Other)
  Sender: FDA-Public Use
  Company Number: HU-AMGEN-HUNSP2019018934

PATIENT
  Age: 12 Year
  Sex: Female

DRUGS (12)
  1. TREXAN [METHOTREXATE] [Concomitant]
     Dosage: 20 MILLIGRAM
     Dates: start: 20180709
  2. VITAMIN D3 [Concomitant]
     Active Substance: CHOLECALCIFEROL
     Dosage: 2000 INTERNATIONAL UNIT
  3. NAPROSYN E [Concomitant]
     Active Substance: NAPROXEN
     Indication: SPINAL PAIN
     Dosage: MAX 2X1 TBL, AS NEEDED
  4. CATAFLAM [Concomitant]
     Active Substance: DICLOFENAC POTASSIUM
     Dosage: 1 DOSAGE FORM
  5. ENBREL [Suspect]
     Active Substance: ETANERCEPT
     Indication: RHEUMATOID ARTHRITIS
     Dosage: 50 MG, WEEKLY 1X
     Route: 058
     Dates: start: 201901, end: 20190123
  6. SUPRASTIN [Concomitant]
     Active Substance: CHLOROPYRAMINE HYDROCHLORIDE
     Indication: PROPHYLAXIS
  7. LUDEA [Concomitant]
     Dosage: 20 MG, 1 CAPSULE IN THE MORNING
  8. FOLIC ACID. [Concomitant]
     Active Substance: FOLIC ACID
     Dosage: 1 DOSAGE FORM TBL M-TU-W-TH
  9. CALCIUM [Concomitant]
     Active Substance: CALCIUM
     Dosage: 1X500 MG
  10. SUPRASTIN [Concomitant]
     Active Substance: CHLOROPYRAMINE HYDROCHLORIDE
     Indication: PROPHYLAXIS
     Dosage: 2X1 TBL
  11. MEDROL [Concomitant]
     Active Substance: METHYLPREDNISOLONE
     Indication: PROPHYLAXIS
     Dosage: 4 MILLIGRAM
  12. MEDROL [Concomitant]
     Active Substance: METHYLPREDNISOLONE
     Indication: PROPHYLAXIS

REACTIONS (2)
  - Sensation of foreign body [Recovered/Resolved]
  - Dermatitis allergic [Recovered/Resolved]

NARRATIVE: CASE EVENT DATE: 201901
